FAERS Safety Report 6999274-2 (Version None)
Quarter: 2010Q3

REPORT INFORMATION
  Report Type: 
  Country: None (occurrence: None)
  Receive Date: 20100920
  Receipt Date: 20100310
  Transmission Date: 20110219
  Serious: No
  Sender: FDA-Public Use
  Company Number: US-ASTRAZENECA-2010SE10694

PATIENT
  Age: 499 Month
  Sex: Female
  Weight: 95.3 kg

DRUGS (1)
  1. SEROQUEL XR [Suspect]
     Indication: BIPOLAR II DISORDER
     Route: 048
     Dates: start: 20100201

REACTIONS (2)
  - BIPOLAR I DISORDER [None]
  - MANIA [None]
